FAERS Safety Report 7588417-8 (Version None)
Quarter: 2011Q3

REPORT INFORMATION
  Report Type: 
  Country: None (occurrence: None)
  Receive Date: 20110705
  Receipt Date: 20110601
  Transmission Date: 20111222
  Serious: Yes (Hospitalization, Other)
  Sender: FDA-Public Use
  Company Number: US-BAYER-2011-021377

PATIENT
  Age: 22 Year
  Sex: Female
  Weight: 56.689 kg

DRUGS (2)
  1. MARIJUANA [Concomitant]
     Indication: ANALGESIC THERAPY
  2. YASMIN [Suspect]
     Indication: ORAL CONTRACEPTION
     Dosage: UNK
     Dates: start: 20060101, end: 20070801

REACTIONS (7)
  - GASTROINTESTINAL DISORDER [None]
  - CHOLECYSTITIS [None]
  - ADHESION [None]
  - PAIN [None]
  - GALLBLADDER DISORDER [None]
  - INJURY [None]
  - BILIARY DYSKINESIA [None]
